FAERS Safety Report 10311119 (Version 1)
Quarter: 2014Q3

REPORT INFORMATION
  Report Type: Spontaneous
  Country: US (occurrence: None)
  Receive Date: 20140716
  Receipt Date: 20140716
  Transmission Date: 20150326
  Serious: Yes (Hospitalization)
  Sender: FDA-Public Use
  Company Number: None

PATIENT
  Age: 56 Year
  Sex: Male
  Weight: 104.78 kg

DRUGS (11)
  1. ASA [Concomitant]
     Active Substance: ASPIRIN
  2. ZANTAC [Concomitant]
     Active Substance: RANITIDINE HYDROCHLORIDE
  3. LISINOPRIL. [Concomitant]
     Active Substance: LISINOPRIL
  4. CRESTOR [Concomitant]
     Active Substance: ROSUVASTATIN CALCIUM
  5. WELLBUTRIN [Concomitant]
     Active Substance: BUPROPION HYDROCHLORIDE
  6. DEFINITY [Suspect]
     Active Substance: PERFLUTREN
     Indication: SCAN MYOCARDIAL PERFUSION
     Dates: start: 20140715, end: 20140715
  7. PLAVIX [Concomitant]
     Active Substance: CLOPIDOGREL BISULFATE
  8. VITAMIN D [Concomitant]
     Active Substance: CHOLECALCIFEROL
  9. COLACE [Concomitant]
     Active Substance: DOCUSATE SODIUM
  10. IMDUR [Concomitant]
     Active Substance: ISOSORBIDE MONONITRATE
  11. METOPROLOL XL [Concomitant]
     Active Substance: METOPROLOL

REACTIONS (1)
  - Sensation of foreign body [None]

NARRATIVE: CASE EVENT DATE: 20140715
